FAERS Safety Report 25092048 (Version 2)
Quarter: 2025Q2

REPORT INFORMATION
  Report Type: Report from Study
  Country: US (occurrence: US)
  Receive Date: 20250318
  Receipt Date: 20250405
  Transmission Date: 20250716
  Serious: Yes (Hospitalization)
  Sender: ABBVIE
  Company Number: US-ABBVIE-6053536

PATIENT
  Age: 69 Year
  Sex: Female

DRUGS (1)
  1. SKYRIZI [Suspect]
     Active Substance: RISANKIZUMAB-RZAA
     Indication: Psoriasis
     Route: 058
     Dates: start: 202409

REACTIONS (5)
  - Brain fog [Unknown]
  - Psoriasis [Recovering/Resolving]
  - Hepatic cirrhosis [Unknown]
  - Cognitive disorder [Unknown]
  - Skin irritation [Unknown]

NARRATIVE: CASE EVENT DATE: 20250201
